FAERS Safety Report 7024335-1 (Version None)
Quarter: 2010Q3

REPORT INFORMATION
  Report Type: 
  Country: None (occurrence: None)
  Receive Date: 20100917
  Receipt Date: 20100517
  Transmission Date: 20110219
  Serious: Yes (Other)
  Sender: FDA-Public Use
  Company Number: 2010063377

PATIENT
  Sex: Female
  Weight: 66.7 kg

DRUGS (5)
  1. NAVANE [Suspect]
     Indication: HALLUCINATION
     Dosage: 1 MG
  2. NAVANE [Suspect]
     Indication: PSYCHOTIC DISORDER
     Dosage: 1 MG
  3. ATIVAN [Concomitant]
  4. SYNTHROID [Concomitant]
  5. CELEXA [Concomitant]

REACTIONS (1)
  - TARDIVE DYSKINESIA [None]
